FAERS Safety Report 8124424-4 (Version None)
Quarter: 2012Q1

REPORT INFORMATION
  Report Type: 
  Country: None (occurrence: None)
  Receive Date: 20120209
  Receipt Date: 20120202
  Transmission Date: 20120608
  Serious: No
  Sender: FDA-Public Use
  Company Number: US-BAYER-2012-010725

PATIENT
  Age: 65 Year
  Sex: Male

DRUGS (3)
  1. AVELOX [Suspect]
     Indication: CHRONIC SINUSITIS
     Dosage: ^ONE TABLET TAKEN ONLY^
     Route: 048
     Dates: start: 20120131, end: 20120131
  2. ANTIDEPRESSANTS [Concomitant]
  3. NARDIL [Concomitant]

REACTIONS (1)
  - PRURITUS [None]
